FAERS Safety Report 24864953 (Version 1)
Quarter: 2025Q1

REPORT INFORMATION
  Report Type: Spontaneous
  Country: JP (occurrence: JP)
  Receive Date: 20250121
  Receipt Date: 20250121
  Transmission Date: 20250408
  Serious: Yes (Other)
  Sender: SANOFI AVENTIS
  Company Number: JP-SA-2024SA293392

PATIENT
  Age: 67 Year
  Sex: Male

DRUGS (3)
  1. DUPIXENT [Interacting]
     Active Substance: DUPILUMAB
     Indication: Chronic eosinophilic rhinosinusitis
     Route: 058
  2. NIVOLUMAB [Interacting]
     Active Substance: NIVOLUMAB
     Indication: Metastases to lymph nodes
     Route: 065
  3. NIVOLUMAB [Interacting]
     Active Substance: NIVOLUMAB
     Indication: Intestinal metastasis

REACTIONS (4)
  - Immune-mediated adverse reaction [Unknown]
  - Potentiating drug interaction [Unknown]
  - Pruritus [Unknown]
  - Erythema [Unknown]
